FAERS Safety Report 9609368 (Version 3)
Quarter: 2013Q4

REPORT INFORMATION
  Report Type: Report from Study
  Country: US (occurrence: US)
  Receive Date: 20131009
  Receipt Date: 20131119
  Transmission Date: 20140711
  Serious: Yes (Hospitalization)
  Sender: FDA-Public Use
  Company Number: US-ACTELION-A-US2013-89357

PATIENT
  Age: 43 Year
  Sex: Male

DRUGS (2)
  1. TRACLEER [Suspect]
     Indication: PULMONARY ARTERIAL HYPERTENSION
     Dosage: UNK
     Route: 048
  2. ADCIRCA [Concomitant]

REACTIONS (4)
  - Renal failure acute [Recovering/Resolving]
  - Muscle spasms [Recovering/Resolving]
  - Sleep disorder [Unknown]
  - Insomnia [Unknown]
